FAERS Safety Report 13041499 (Version 1)
Quarter: 2016Q4

REPORT INFORMATION
  Report Type: Spontaneous
  Country: US (occurrence: US)
  Receive Date: 20161219
  Receipt Date: 20161219
  Transmission Date: 20170207
  Serious: No
  Sender: FDA-Public Use
  Company Number: US-ROCHE-1282539

PATIENT
  Age: 60 Year
  Sex: Female

DRUGS (6)
  1. ZELBORAF [Suspect]
     Active Substance: VEMURAFENIB
     Dosage: DOSE: 3 TABLETS (6 TABLETS/DAY)
     Route: 048
  2. ZELBORAF [Suspect]
     Active Substance: VEMURAFENIB
     Dosage: DOSE: (4 TABLETS/DAY)
     Route: 048
  3. ZELBORAF [Suspect]
     Active Substance: VEMURAFENIB
     Dosage: INTERMITTENT DOSING WITH 6 TABLETS/DAY (2 WEEKS ON, 2 WEEKS OFF)
     Route: 048
     Dates: start: 20130823
  4. ZELBORAF [Suspect]
     Active Substance: VEMURAFENIB
     Indication: METASTATIC MALIGNANT MELANOMA
     Dosage: DOSE: 4 TABLETS (8 TABLETS/DAY)
     Route: 048
     Dates: start: 201305
  5. ZELBORAF [Suspect]
     Active Substance: VEMURAFENIB
     Dosage: DOSE INCREASED TO 6 TABLETS/DAY
     Route: 048
  6. ZELBORAF [Suspect]
     Active Substance: VEMURAFENIB
     Dosage: 4TABS IN THE MORNING, 4TABS IN EVENING, 940 MG OR 960MG DOSE
     Route: 048
     Dates: start: 201306

REACTIONS (11)
  - Musculoskeletal pain [Recovered/Resolved]
  - Tooth fracture [Not Recovered/Not Resolved]
  - Neck pain [Recovered/Resolved]
  - Vitamin D deficiency [Not Recovered/Not Resolved]
  - Joint swelling [Recovered/Resolved]
  - Alopecia [Not Recovered/Not Resolved]
  - Iron deficiency [Unknown]
  - Anaemia [Not Recovered/Not Resolved]
  - Rash [Recovered/Resolved]
  - Arthralgia [Recovered/Resolved]
  - Palpitations [Recovered/Resolved]

NARRATIVE: CASE EVENT DATE: 20130901
